FAERS Safety Report 19596688 (Version 1)
Quarter: 2021Q3

REPORT INFORMATION
  Report Type: Spontaneous
  Country: IN (occurrence: IN)
  Receive Date: 20210722
  Receipt Date: 20210722
  Transmission Date: 20211014
  Serious: Yes (Other)
  Sender: FDA-Public Use
  Company Number: IN-PFIZER INC-2020366365

PATIENT
  Age: 51 Year
  Sex: Female

DRUGS (6)
  1. PALBACE [Suspect]
     Active Substance: PALBOCICLIB
     Dosage: 125 MG, DAILY (21/30 )
  2. PALBACE [Suspect]
     Active Substance: PALBOCICLIB
     Indication: BREAST CANCER METASTATIC
     Dosage: 125 MG, 1X/DAY
     Route: 048
     Dates: start: 20200914
  3. PALBACE [Suspect]
     Active Substance: PALBOCICLIB
     Dosage: 125 MG, 1X/DAY
     Route: 048
     Dates: start: 20201114
  4. HERCEPTIN [Concomitant]
     Active Substance: TRASTUZUMAB
     Dosage: 440 MG, MONTHLY (440MG IN 500ML NS IV OVER 60 MINS ON DAY 1?REPEAT EVERY MONTHLY FOR 3 MONTHS)
     Route: 042
  5. ZOLDONAT [Concomitant]
     Dosage: 4 MG (4MG IN 100ML NS IV OVER 30 MINS ON DAY 1?REPEAT EVERY 3 MONTHLY)
     Route: 042
  6. LYCOGEM [Concomitant]
     Active Substance: MINERALS\VITAMINS
     Dosage: 1 DF, DAILY (1 TABLET DAILY FOR 3 MONTHS)

REACTIONS (12)
  - Muscle spasms [Unknown]
  - Peripheral swelling [Unknown]
  - Decreased appetite [Unknown]
  - Asthenia [Unknown]
  - Pneumonia [Unknown]
  - Swelling [Unknown]
  - Pyrexia [Unknown]
  - Fatigue [Unknown]
  - Gait inability [Unknown]
  - Dyspnoea [Unknown]
  - Vomiting [Unknown]
  - Arthralgia [Unknown]

NARRATIVE: CASE EVENT DATE: 202009
